FAERS Safety Report 22587354 (Version 1)
Quarter: 2023Q2

REPORT INFORMATION
  Report Type: Spontaneous
  Country: US (occurrence: US)
  Receive Date: 20230612
  Receipt Date: 20230612
  Transmission Date: 20230722
  Serious: Yes (Other)
  Sender: FDA-Public Use
  Company Number: US-ACADIA PHARMACEUTICALS INC.-ACA-2023-TRF-001965

PATIENT

DRUGS (1)
  1. DAYBUE [Suspect]
     Active Substance: TROFINETIDE
     Route: 065

REACTIONS (1)
  - Seizure [Unknown]
